FAERS Safety Report 7429683-9 (Version None)
Quarter: 2011Q2

REPORT INFORMATION
  Report Type: 
  Country: None (occurrence: None)
  Receive Date: 20110421
  Receipt Date: 20110412
  Transmission Date: 20111010
  Serious: Yes (Hospitalization)
  Sender: FDA-Public Use
  Company Number: FR-GILEAD-2011-0038476

PATIENT
  Sex: Male
  Weight: 70 kg

DRUGS (3)
  1. TRUVADA [Concomitant]
     Indication: HIV INFECTION
  2. ISENTRESS [Concomitant]
  3. ATRIPLA [Suspect]
     Indication: HIV INFECTION
     Dates: start: 20110409, end: 20110401

REACTIONS (3)
  - VERTIGO [None]
  - GENERAL PHYSICAL HEALTH DETERIORATION [None]
  - PALPITATIONS [None]
